FAERS Safety Report 6007256-2 (Version None)
Quarter: 2008Q4

REPORT INFORMATION
  Report Type: 
  Country: None (occurrence: None)
  Receive Date: 20081217
  Receipt Date: 20080204
  Transmission Date: 20090506
  Serious: No
  Sender: FDA-Public Use
  Company Number: US-ASTRAZENECA-2008UW02508

PATIENT
  Age: 64 Year
  Sex: Male

DRUGS (6)
  1. CRESTOR [Suspect]
     Route: 048
  2. NIACIN [Concomitant]
  3. FLOMAX [Concomitant]
  4. INDERAL [Concomitant]
  5. CHANTIX [Concomitant]
  6. DIABETIC MEDICATION [Concomitant]
     Indication: DIABETES MELLITUS

REACTIONS (5)
  - HIGH DENSITY LIPOPROTEIN DECREASED [None]
  - LOCALISED OEDEMA [None]
  - NEPHROLITHIASIS [None]
  - PROSTATE INFECTION [None]
  - URINARY RETENTION [None]
